FAERS Safety Report 14212791 (Version 1)
Quarter: 2017Q4

REPORT INFORMATION
  Report Type: Report from Study
  Country: US (occurrence: BR)
  Receive Date: 20171122
  Receipt Date: 20171122
  Transmission Date: 20180321
  Serious: Yes (Life-Threatening, Other)
  Sender: FDA-Public Use
  Company Number: US-SUNOVION-2017SUN004975

PATIENT
  Sex: Female
  Weight: 72 kg

DRUGS (3)
  1. INDACATEROL AND GLYCOPYRROLATE [Suspect]
     Active Substance: GLYCOPYRROLATE\INDACATEROL MALEATE
     Indication: DYSPNOEA
     Dosage: 1 DF, QD (50 GLYCOPYRROLATE/110 INDACTEROL_
     Route: 055
  2. GLICEFOR [Concomitant]
     Dosage: UNK
  3. GLIMEPIRIDE. [Concomitant]
     Active Substance: GLIMEPIRIDE
     Dosage: UNK

REACTIONS (4)
  - Product use in unapproved indication [Unknown]
  - Dyspnoea [Recovering/Resolving]
  - Fear of death [Unknown]
  - Cough [Unknown]
